FAERS Safety Report 6547396-2 (Version None)
Quarter: 2010Q1

REPORT INFORMATION
  Report Type: 
  Country: None (occurrence: None)
  Receive Date: 20100122
  Receipt Date: 20100111
  Transmission Date: 20100710
  Serious: Yes (Other)
  Sender: FDA-Public Use
  Company Number: PHHY2009FR56891

PATIENT
  Sex: Female
  Weight: 53 kg

DRUGS (5)
  1. EXELON TTS [Suspect]
     Indication: DEMENTIA
     Dosage: 9.5 MG, QD
     Dates: start: 20090815, end: 20090904
  2. TIANEPTINE [Concomitant]
     Indication: AFFECTIVE DISORDER
     Dosage: 12.5 MG, TID
  3. VALSARTAN/HYDROCHLOORTHIAZIDE [Concomitant]
     Indication: HYPERTENSION
     Dosage: 80/12.5 MG QD
  4. ACEBUTOLOL [Concomitant]
     Indication: HYPERTENSION
     Dosage: 200 MG, QD
  5. LORAZEPAM [Concomitant]
     Indication: INSOMNIA
     Dosage: 1 MG, QD

REACTIONS (2)
  - RASH MACULO-PAPULAR [None]
  - SKIN REACTION [None]
